FAERS Safety Report 22211800 (Version 2)
Quarter: 2023Q2

REPORT INFORMATION
  Report Type: Report from Study
  Country: FR (occurrence: FR)
  Receive Date: 20230414
  Receipt Date: 20230424
  Transmission Date: 20230722
  Serious: Yes (Other)
  Sender: FDA-Public Use
  Company Number: FR-AMGEN-FRACT2023062900

PATIENT
  Age: 45 Year
  Sex: Female
  Weight: 49 kg

DRUGS (6)
  1. PANITUMUMAB [Suspect]
     Active Substance: PANITUMUMAB
     Indication: Colorectal cancer
     Dosage: 294 MILLIGRAM (1ST CYCLE)
     Route: 042
     Dates: start: 20190819
  2. OXALIPLATIN [Suspect]
     Active Substance: OXALIPLATIN
     Indication: Colorectal cancer
     Dosage: 125 MILLIGRAM (1ST CYCLE)
     Route: 042
     Dates: start: 20190819
  3. IRINOTECAN [Suspect]
     Active Substance: IRINOTECAN
     Indication: Colorectal cancer
     Dosage: 125 MILLIGRAM (1ST CYCLE)
     Route: 042
     Dates: start: 20190819
  4. FLUOROURACIL [Suspect]
     Active Substance: FLUOROURACIL
     Indication: Colorectal cancer
     Dosage: 585 MILLIGRAM (BOLUS) (1ST CYCLE)
     Route: 042
     Dates: start: 20190819
  5. FLUOROURACIL [Suspect]
     Active Substance: FLUOROURACIL
     Dosage: 585 MILLIGRAM (CONTINUOUS) (1ST CYCLE)
     Route: 042
     Dates: start: 20190819
  6. LEUCOVORIN [Suspect]
     Active Substance: LEUCOVORIN
     Indication: Colorectal cancer
     Dosage: 587 MILLIGRAM (1ST CYCLE)
     Route: 042
     Dates: start: 20190819

REACTIONS (1)
  - Accidental overdose [Recovered/Resolved]

NARRATIVE: CASE EVENT DATE: 20190819
